FAERS Safety Report 9228892 (Version 7)
Quarter: 2013Q3

REPORT INFORMATION
  Report Type: Report from Study
  Country: DE (occurrence: DE)
  Receive Date: 20130412
  Receipt Date: 20130709
  Transmission Date: 20140515
  Serious: Yes (Hospitalization)
  Sender: FDA-Public Use
  Company Number: DE-TEVA-393012USA

PATIENT
  Age: 67 Year
  Sex: Male
  Weight: 81 kg

DRUGS (12)
  1. BENDAMUSTINE [Suspect]
     Indication: NON-HODGKIN^S LYMPHOMA
     Dosage: UNKNOWN/D
     Dates: start: 20130219, end: 20130220
  2. BENDAMUSTINE [Suspect]
     Dates: start: 20130319, end: 20130320
  3. BENDAMUSTINE [Suspect]
     Dates: start: 20130423
  4. BENDAMUSTINE [Suspect]
     Dosage: UNKNOWN/D
     Route: 042
     Dates: end: 20130403
  5. RITUXIMAB [Suspect]
     Indication: NON-HODGKIN^S LYMPHOMA
     Dosage: UNKNOWN/D
     Dates: start: 20130219, end: 20130220
  6. RITUXIMAB [Suspect]
     Dates: start: 20130319, end: 20130319
  7. RITUXIMAB [Suspect]
     Dates: start: 20130423
  8. TEMSIROLIMUS [Suspect]
     Indication: NON-HODGKIN^S LYMPHOMA
     Dates: start: 20130220, end: 20130226
  9. TEMSIROLIMUS [Suspect]
     Dates: start: 20130320, end: 20130326
  10. TEMSIROLIMUS [Suspect]
     Dates: start: 20130406
  11. ALLOPURINOL [Concomitant]
  12. MCP [Concomitant]

REACTIONS (7)
  - Oesophageal disorder [Not Recovered/Not Resolved]
  - General physical health deterioration [Unknown]
  - Asthenia [Unknown]
  - Staphylococcal infection [Recovered/Resolved]
  - Weight decreased [Not Recovered/Not Resolved]
  - Vomiting [Recovering/Resolving]
  - Thrombocytopenia [Unknown]
